FAERS Safety Report 20897903 (Version 2)
Quarter: 2022Q4

REPORT INFORMATION
  Report Type: Report from Study
  Country: US (occurrence: US)
  Receive Date: 20220531
  Receipt Date: 20221006
  Transmission Date: 20230113
  Serious: No
  Sender: FDA-Public Use
  Company Number: US-BRISTOL-MYERS SQUIBB COMPANY-2022-037432

PATIENT
  Age: 81 Year
  Sex: Male
  Weight: 70.31 kg

DRUGS (1)
  1. POMALYST [Suspect]
     Active Substance: POMALIDOMIDE
     Indication: Plasma cell myeloma
     Dosage: 21D ON 7D OFF?BATCH NUMBER : C2514A WITH EXPIRY DATE : 31-JAN-2026
     Route: 048
     Dates: start: 20200724

REACTIONS (6)
  - Fatigue [Unknown]
  - Constipation [Unknown]
  - Confusional state [Unknown]
  - Somnolence [Not Recovered/Not Resolved]
  - Dizziness [Not Recovered/Not Resolved]
  - Ear infection [Not Recovered/Not Resolved]
